FAERS Safety Report 9511046 (Version 1)
Quarter: 2013Q3

REPORT INFORMATION
  Report Type: Spontaneous
  Country: US (occurrence: None)
  Receive Date: 20130905
  Receipt Date: 20130905
  Transmission Date: 20140515
  Serious: Yes (Hospitalization)
  Sender: FDA-Public Use
  Company Number: 2013P1018689

PATIENT
  Age: 60 Year
  Sex: Female

DRUGS (4)
  1. PLAQUENIL [Suspect]
     Indication: SYSTEMIC LUPUS ERYTHEMATOSUS
     Dosage: 2 TABLETS;QD;PO
     Route: 048
     Dates: start: 2010, end: 2010
  2. PREDNISONE [Concomitant]
  3. CALCIUM [Concomitant]
  4. MULTIVITAMIN [Concomitant]

REACTIONS (4)
  - Rash [None]
  - Pruritus [None]
  - Feeling abnormal [None]
  - Lupus-like syndrome [None]
